FAERS Safety Report 14558958 (Version 2)
Quarter: 2018Q1

REPORT INFORMATION
  Report Type: Spontaneous
  Country: US (occurrence: US)
  Receive Date: 20180221
  Receipt Date: 20180302
  Transmission Date: 20180509
  Serious: Yes (Other)
  Sender: FDA-Public Use
  Company Number: US-SAOL THERAPEUTICS-2018SAO00211

PATIENT
  Age: 16 Year
  Sex: Male

DRUGS (2)
  1. LIORESAL [Suspect]
     Active Substance: BACLOFEN
     Dosage: 518.1 ?G, \DAY
     Route: 037
     Dates: start: 20180212
  2. LIORESAL [Suspect]
     Active Substance: BACLOFEN
     Dosage: 518.5 ?G, \DAY
     Route: 037

REACTIONS (4)
  - Tachycardia [Unknown]
  - Drug withdrawal syndrome [Unknown]
  - Respiratory distress [Unknown]
  - Hypothermia [Unknown]

NARRATIVE: CASE EVENT DATE: 20180212
